FAERS Safety Report 13183609 (Version 1)
Quarter: 2017Q1

REPORT INFORMATION
  Report Type: Spontaneous
  Country: US (occurrence: US)
  Receive Date: 20170203
  Receipt Date: 20170203
  Transmission Date: 20170428
  Serious: Yes (Other)
  Sender: FDA-Public Use
  Company Number: None

PATIENT
  Age: 63 Year
  Sex: Female
  Weight: 68.04 kg

DRUGS (1)
  1. LISINOPRIL 20MG/HYDROCHLOROTHIAZIDE 12.5MG LUPIN LIMITED [Suspect]
     Active Substance: HYDROCHLOROTHIAZIDE\LISINOPRIL
     Indication: BLOOD PRESSURE INCREASED
     Dosage: DATES OF USE LISTED AS 17 JUN 2016 - 30 JUN 2016 - BUT ON SECOND LINE LISTED + 6-6-2016
     Dates: start: 20160617, end: 20160630

REACTIONS (2)
  - Dyspnoea [None]
  - Cough [None]

NARRATIVE: CASE EVENT DATE: 20160621
